FAERS Safety Report 11090262 (Version 1)
Quarter: 2015Q2

REPORT INFORMATION
  Report Type: Spontaneous
  Country: FR (occurrence: None)
  Receive Date: 20150501
  Receipt Date: 20150501
  Transmission Date: 20150821
  Serious: Yes (Life-Threatening)
  Sender: FDA-Public Use
  Company Number: 2838260

PATIENT
  Age: 74 Year
  Sex: Male

DRUGS (15)
  1. MACROGOL [Concomitant]
     Active Substance: POLYETHYLENE GLYCOLS
  2. CARBOPLATIN. [Suspect]
     Active Substance: CARBOPLATIN
     Indication: NASAL SINUS CANCER
     Dosage: 590 MG MILLIGRAMS CYCLICAL, INTRAVENOUS (NOT OTHERWISE SPECIFIED)
     Route: 042
     Dates: start: 20141208, end: 20150203
  3. NAVELBINE [Suspect]
     Active Substance: VINORELBINE TARTRATE
     Indication: NASAL SINUS CANCER
     Dosage: 60 MG MILLIGRAMS CYCLICAL, INTRAVENOUS (NOT OTHERWISE SPECIFIED)
     Route: 042
     Dates: start: 20141208, end: 20150203
  4. EMEND [Concomitant]
     Active Substance: APREPITANT
  5. ONDANSETRONE ACCORD HEALTHCARE [Concomitant]
  6. METHYLPREDNISOLONE. [Concomitant]
     Active Substance: METHYLPREDNISOLONE
  7. EMLA [Concomitant]
     Active Substance: LIDOCAINE\PRILOCAINE
  8. ACETYLSALICYLIC ACID [Concomitant]
     Active Substance: ASPIRIN
  9. MOTILIUM [Concomitant]
     Active Substance: DOMPERIDONE
  10. INEXIUM [Concomitant]
     Active Substance: ESOMEPRAZOLE
  11. SOLUPRED /00016201/ [Concomitant]
     Active Substance: PREDNISOLONE
  12. CELECTOL [Concomitant]
     Active Substance: CELIPROLOL HYDROCHLORIDE
  13. SIMVASTATINE [Concomitant]
     Active Substance: SIMVASTATIN
  14. EXACYL [Concomitant]
     Active Substance: TRANEXAMIC ACID
  15. EFFERALGAN  CODEINE [Concomitant]
     Active Substance: ACETAMINOPHEN\CODEINE PHOSPHATE

REACTIONS (5)
  - Cholestasis [None]
  - Febrile bone marrow aplasia [None]
  - Agranulocytosis [None]
  - Lung infection [None]
  - Hepatocellular injury [None]

NARRATIVE: CASE EVENT DATE: 20150112
